FAERS Safety Report 9787837 (Version 13)
Quarter: 2014Q4

REPORT INFORMATION
  Report Type: Spontaneous
  Country: US (occurrence: US)
  Receive Date: 20131230
  Receipt Date: 20141008
  Transmission Date: 20150529
  Serious: Yes (Hospitalization, Other)
  Sender: FDA-Public Use
  Company Number: US-PFIZER INC-2013373110

PATIENT
  Age: 73 Year
  Sex: Male
  Weight: 74.83 kg

DRUGS (36)
  1. AMLODIPINE/BENAZEPRIL [Concomitant]
     Dosage: 5 MG/20 MG TWICE A DAY
     Route: 048
     Dates: start: 20140430, end: 20140430
  2. MEGACE [Concomitant]
     Active Substance: MEGESTROL ACETATE
     Dosage: 40 MG/ML (5ML TWICE DAILY ORALLY)
     Route: 048
     Dates: start: 20140716, end: 20140716
  3. NORCO [Concomitant]
     Active Substance: ACETAMINOPHEN\HYDROCODONE BITARTRATE
     Dosage: 10 MG/325 MG
     Dates: start: 20140528, end: 20140528
  4. SLOMAG [Concomitant]
     Dosage: UNK
     Route: 048
     Dates: start: 20140430, end: 20140430
  5. SLOMAG [Concomitant]
     Dosage: UNK
     Route: 048
     Dates: start: 20140716, end: 20140716
  6. OMEPRAZOLE. [Concomitant]
     Active Substance: OMEPRAZOLE
     Dosage: 20 MG, 1X/DAY
     Route: 048
     Dates: start: 20140528, end: 20140528
  7. ASPIRIN. [Concomitant]
     Active Substance: ASPIRIN
     Dosage: 81 MG, DAILY
  8. ALLOPURINOL. [Concomitant]
     Active Substance: ALLOPURINOL
     Dosage: 300 MG, 1X/DAY
     Route: 048
     Dates: start: 20140430, end: 20140430
  9. MEGACE [Concomitant]
     Active Substance: MEGESTROL ACETATE
     Indication: DECREASED APPETITE
     Dosage: 40 MG/ML (5ML TWICE DAILY ORALLY)
     Route: 048
     Dates: start: 20140402, end: 20140402
  10. MEGACE [Concomitant]
     Active Substance: MEGESTROL ACETATE
     Dosage: 40 MG/ML (5ML TWICE DAILY ORALLY)
     Route: 048
     Dates: start: 20140430, end: 20140430
  11. NORCO [Concomitant]
     Active Substance: ACETAMINOPHEN\HYDROCODONE BITARTRATE
     Dosage: 10 MG/325 MG
     Dates: start: 20140716, end: 20140716
  12. OMEPRAZOLE. [Concomitant]
     Active Substance: OMEPRAZOLE
     Dosage: 20 MG, 1X/DAY
     Route: 048
     Dates: start: 20140716, end: 20140716
  13. ALBUTEROL. [Concomitant]
     Active Substance: ALBUTEROL
     Dosage: 2 PUFFS AS NEEDED
     Route: 055
     Dates: start: 20140528, end: 20140528
  14. SUTENT [Suspect]
     Active Substance: SUNITINIB MALATE
     Indication: METASTATIC RENAL CELL CARCINOMA
     Dosage: 50 MG DAILY CYCLIC (1-4 WKS THEN OFF 2 WKS)
     Route: 048
     Dates: start: 20131216, end: 20140407
  15. NORCO [Concomitant]
     Active Substance: ACETAMINOPHEN\HYDROCODONE BITARTRATE
     Dosage: 10 MG/325 MG
     Dates: start: 20140402, end: 20140402
  16. SUTENT [Suspect]
     Active Substance: SUNITINIB MALATE
     Dosage: 37.5 MG DAILY (4 WEEK ON/2 WEEK OFF)
     Dates: start: 20140430
  17. ALLOPURINOL. [Concomitant]
     Active Substance: ALLOPURINOL
     Dosage: 300 MG, 1X/DAY
     Route: 048
     Dates: start: 20140528, end: 20140528
  18. METFORMIN [Concomitant]
     Active Substance: METFORMIN HYDROCHLORIDE
     Dosage: 500 MG, 1X/DAY
     Route: 048
     Dates: start: 20140402, end: 20140430
  19. SLOMAG [Concomitant]
     Dosage: UNK
     Route: 048
     Dates: start: 20140528, end: 20140528
  20. OMEPRAZOLE. [Concomitant]
     Active Substance: OMEPRAZOLE
     Dosage: 20 MG, 1X/DAY
     Route: 048
     Dates: start: 20140402, end: 20140402
  21. OMEPRAZOLE. [Concomitant]
     Active Substance: OMEPRAZOLE
     Dosage: 20 MG, 1X/DAY
     Route: 048
     Dates: start: 20140430, end: 20140430
  22. ALLOPURINOL. [Concomitant]
     Active Substance: ALLOPURINOL
     Dosage: 300 MG, 1X/DAY
     Route: 048
     Dates: start: 20140402, end: 20140402
  23. ALLOPURINOL. [Concomitant]
     Active Substance: ALLOPURINOL
     Dosage: 300 MG, 1X/DAY
     Route: 048
     Dates: start: 20140716, end: 20140716
  24. AMLODIPINE/BENAZEPRIL [Concomitant]
     Dosage: 5 MG/20 MG TWICE A DAY
     Route: 048
     Dates: start: 20140528, end: 20140528
  25. ALBUTEROL. [Concomitant]
     Active Substance: ALBUTEROL
     Dosage: 2 PUFFS AS NEEDED
     Route: 055
     Dates: start: 20140402, end: 20140402
  26. AMLODIPINE/BENAZEPRIL [Concomitant]
     Dosage: 5 MG/20 MG TWICE A DAY
     Route: 048
     Dates: start: 20140402, end: 20140402
  27. AMLODIPINE/BENAZEPRIL [Concomitant]
     Dosage: 5 MG/20 MG TWICE A DAY
     Route: 048
     Dates: start: 20140716, end: 20140716
  28. MEGACE [Concomitant]
     Active Substance: MEGESTROL ACETATE
     Dosage: 40 MG/ML (5ML TWICE DAILY ORALLY)
     Route: 048
     Dates: start: 20140528, end: 20140528
  29. ALBUTEROL. [Concomitant]
     Active Substance: ALBUTEROL
     Dosage: 2 PUFFS AS NEEDED
     Route: 055
     Dates: start: 20140430, end: 20140430
  30. ALBUTEROL. [Concomitant]
     Active Substance: ALBUTEROL
     Dosage: 2 PUFFS AS NEEDED
     Route: 055
     Dates: start: 20140716, end: 20140716
  31. QVAR [Concomitant]
     Active Substance: BECLOMETHASONE DIPROPIONATE
     Dosage: UNK
  32. CENTRUM SILVER [Concomitant]
     Active Substance: VITAMINS
     Dosage: UNK
  33. PRILOSEC [Concomitant]
     Active Substance: OMEPRAZOLE MAGNESIUM
     Dosage: UNK
  34. DOXYCYCLINE. [Concomitant]
     Active Substance: DOXYCYCLINE
     Indication: ACNE
     Dosage: 100 MG, DAILY
  35. LIPITOR [Concomitant]
     Active Substance: ATORVASTATIN CALCIUM
     Dosage: 20 MG, DAILY
  36. NORCO [Concomitant]
     Active Substance: ACETAMINOPHEN\HYDROCODONE BITARTRATE
     Dosage: 10 MG/325 MG
     Dates: start: 20140430, end: 20140430

REACTIONS (36)
  - Dysgeusia [Unknown]
  - Stomatitis [Unknown]
  - Dry mouth [Unknown]
  - Tachycardia [Unknown]
  - Chromaturia [Unknown]
  - Dyspepsia [Unknown]
  - Arthralgia [Unknown]
  - Pyrexia [Not Recovered/Not Resolved]
  - Palmar-plantar erythrodysaesthesia syndrome [Unknown]
  - Weight decreased [Unknown]
  - Blood calcium increased [Unknown]
  - Thirst decreased [Unknown]
  - Blood potassium decreased [Unknown]
  - Pneumonia [Recovering/Resolving]
  - Dyspnoea [Recovering/Resolving]
  - Erythema [Recovering/Resolving]
  - Rash [Unknown]
  - Influenza [Recovered/Resolved]
  - Dehydration [Unknown]
  - Asthenia [Not Recovered/Not Resolved]
  - Blood magnesium decreased [Unknown]
  - Constipation [Not Recovered/Not Resolved]
  - Oral pain [Unknown]
  - Joint swelling [Recovered/Resolved]
  - Diarrhoea [Not Recovered/Not Resolved]
  - Nausea [Recovering/Resolving]
  - Eating disorder [Not Recovered/Not Resolved]
  - Glossodynia [Not Recovered/Not Resolved]
  - Pleural effusion [Not Recovered/Not Resolved]
  - Capillary fragility [Unknown]
  - Oral discomfort [Unknown]
  - Confusional state [Unknown]
  - Yellow skin [Unknown]
  - Fatigue [Not Recovered/Not Resolved]
  - Decreased appetite [Not Recovered/Not Resolved]
  - Arthritis [Unknown]

NARRATIVE: CASE EVENT DATE: 201401
